FAERS Safety Report 8075599-7 (Version None)
Quarter: 2012Q1

REPORT INFORMATION
  Report Type: 
  Country: None (occurrence: None)
  Receive Date: 20120127
  Receipt Date: 20120116
  Transmission Date: 20120608
  Serious: Yes (Hospitalization)
  Sender: FDA-Public Use
  Company Number: CA-UCBSA-045277

PATIENT
  Age: 70 Year
  Sex: Male

DRUGS (2)
  1. METHOTREXATE [Concomitant]
     Indication: RHEUMATOID ARTHRITIS
     Dosage: 1FS/SEM/QWK
     Route: 048
     Dates: start: 19940101
  2. CIMZIA [Suspect]
     Indication: RHEUMATOID ARTHRITIS
     Dosage: Q2 SEM/Q2 WKS
     Route: 058
     Dates: start: 20111028

REACTIONS (6)
  - CATHETER SITE INFECTION [None]
  - ARTHRALGIA [None]
  - MUSCULOSKELETAL PAIN [None]
  - INFARCTION [None]
  - CHEST PAIN [None]
  - GENERALISED ERYTHEMA [None]
